FAERS Safety Report 4571822-1 (Version None)
Quarter: 2005Q1

REPORT INFORMATION
  Report Type: 
  Country: None (occurrence: None)
  Receive Date: 20050202
  Receipt Date: 20050119
  Transmission Date: 20050727
  Serious: No
  Sender: FDA-Public Use
  Company Number: USA041080237

PATIENT
  Age: 68 Year
  Sex: Female
  Weight: 73 kg

DRUGS (3)
  1. PROZAC [Suspect]
     Indication: DEPRESSION
     Dosage: 30 MG DAY
  2. PAMELOR [Concomitant]
  3. PERPHENAZINE [Concomitant]

REACTIONS (1)
  - DRUG INEFFECTIVE [None]
